FAERS Safety Report 19198647 (Version 1)
Quarter: 2021Q2

REPORT INFORMATION
  Report Type: Spontaneous
  Country: US (occurrence: US)
  Receive Date: 20210429
  Receipt Date: 20210429
  Transmission Date: 20210717
  Serious: No
  Sender: FDA-Public Use
  Company Number: US-MAYNE PHARMA-2020MYN000346

PATIENT

DRUGS (2)
  1. NORTRIPTYLINE HYDROCHLORIDE. [Suspect]
     Active Substance: NORTRIPTYLINE HYDROCHLORIDE
     Indication: DEPRESSION
     Dosage: 25 MG, QD
     Route: 048
     Dates: start: 2014, end: 20200625
  2. QUDEXY XR [Suspect]
     Active Substance: TOPIRAMATE
     Indication: DEPRESSION
     Dosage: 25 MG, QD
     Route: 048
     Dates: start: 20200626, end: 20200629

REACTIONS (7)
  - Nausea [Unknown]
  - Dizziness [Unknown]
  - Diarrhoea [Unknown]
  - Head discomfort [Unknown]
  - Withdrawal syndrome [Unknown]
  - Chills [Unknown]
  - Weight increased [Unknown]

NARRATIVE: CASE EVENT DATE: 20200625
